FAERS Safety Report 4664491-3 (Version None)
Quarter: 2005Q2

REPORT INFORMATION
  Report Type: 
  Country: None (occurrence: None)
  Receive Date: 20050518
  Receipt Date: 20050510
  Transmission Date: 20051028
  Serious: Yes (Hospitalization, Disabling)
  Sender: FDA-Public Use
  Company Number: 200514187GDDC

PATIENT
  Age: 55 Year
  Sex: Female

DRUGS (6)
  1. GAVISCON [Suspect]
     Indication: DYSPEPSIA
     Dosage: DOSE: UNK
     Route: 048
  2. CARDIOVASCULAR SYSTEM DRUGS [Concomitant]
     Dosage: DOSE: UNK
  3. DIURETICS [Concomitant]
     Dosage: DOSE: UNK
  4. ATORVASTATIN CALCIUM [Concomitant]
     Dosage: DOSE: UNK
  5. GARLIC [Concomitant]
     Dosage: DOSE: UNK
  6. MULTIVITAMINS, PLAIN [Concomitant]
     Dosage: DOSE: UNK

REACTIONS (3)
  - CHEST PAIN [None]
  - CORONARY ARTERY OCCLUSION [None]
  - CORONARY ARTERY STENOSIS [None]
